FAERS Safety Report 4359062-2 (Version None)
Quarter: 2004Q2

REPORT INFORMATION
  Report Type: 
  Country: None (occurrence: None)
  Receive Date: 20040517
  Receipt Date: 20040504
  Transmission Date: 20050107
  Serious: Yes (Other)
  Sender: FDA-Public Use
  Company Number: NL-ROCHE-366497

PATIENT
  Age: 65 Year
  Sex: Male

DRUGS (5)
  1. XELODA [Suspect]
     Route: 048
     Dates: start: 20020824, end: 20020906
  2. EPIRUBICIN [Concomitant]
     Route: 042
     Dates: start: 20020824, end: 20020824
  3. CISPLATIN [Concomitant]
     Dosage: STRENGTH REPORTED AS 1 MG/ML FL 50 ML.
     Dates: start: 20020824, end: 20020824
  4. KYTRIL [Concomitant]
     Route: 042
  5. DEXAMETHASONE [Concomitant]
     Dosage: 1ML = 4MG FNA
     Dates: start: 20020824, end: 20020824

REACTIONS (2)
  - LARGE INTESTINE PERFORATION [None]
  - LEUKOCYTOSIS [None]
